FAERS Safety Report 9299227 (Version 6)
Quarter: 2014Q2

REPORT INFORMATION
  Report Type: Spontaneous
  Country: US (occurrence: US)
  Receive Date: 20130520
  Receipt Date: 20140422
  Transmission Date: 20141212
  Serious: Yes (Hospitalization, Disabling, Other)
  Sender: FDA-Public Use
  Company Number: US-009507513-2011SP058196

PATIENT
  Sex: Female
  Weight: 49.89 kg

DRUGS (2)
  1. NUVARING [Suspect]
     Indication: MENSTRUATION IRREGULAR
     Dosage: UNK
     Route: 067
     Dates: start: 2010, end: 20100610
  2. NUVARING [Suspect]
     Indication: CONTRACEPTION

REACTIONS (41)
  - Cardiac arrest [Recovering/Resolving]
  - Right ventricular dysfunction [Unknown]
  - Pulmonary embolism [Unknown]
  - Brain injury [Unknown]
  - Thalamic infarction [Recovering/Resolving]
  - Petit mal epilepsy [Recovered/Resolved]
  - Peripheral artery thrombosis [Unknown]
  - Fasciotomy [Recovering/Resolving]
  - Vena cava filter insertion [Unknown]
  - Mental disorder [Unknown]
  - Confusional state [Recovering/Resolving]
  - Adverse drug reaction [Recovering/Resolving]
  - Panic attack [Unknown]
  - Chest pain [Unknown]
  - Dyspnoea [Not Recovered/Not Resolved]
  - Palpitations [Unknown]
  - Off label use [Unknown]
  - Memory impairment [Recovering/Resolving]
  - Supraventricular tachycardia [Unknown]
  - Dysphagia [Recovering/Resolving]
  - Cardiomyopathy [Unknown]
  - Endotracheal intubation [Recovered/Resolved]
  - Laryngeal oedema [Recovering/Resolving]
  - Vocal cord disorder [Recovering/Resolving]
  - Acinetobacter bacteraemia [Unknown]
  - Deep vein thrombosis [Unknown]
  - Thromboembolectomy [Unknown]
  - Ventricular extrasystoles [Unknown]
  - Pneumonia staphylococcal [Unknown]
  - Klebsiella infection [Unknown]
  - Staphylococcal bacteraemia [Unknown]
  - Chlamydial infection [Unknown]
  - Diarrhoea [Recovered/Resolved]
  - Packed red blood cell transfusion [Unknown]
  - Haematocrit decreased [Unknown]
  - Endarterectomy [Unknown]
  - Hypotension [Unknown]
  - Peripheral coldness [Unknown]
  - Peripheral swelling [Unknown]
  - Aspiration [Recovering/Resolving]
  - Depression [Unknown]
